FAERS Safety Report 7810723-X (Version None)
Quarter: 2011Q4

REPORT INFORMATION
  Report Type: 
  Country: None (occurrence: None)
  Receive Date: 20111013
  Receipt Date: 20111007
  Transmission Date: 20120403
  Serious: Yes (Hospitalization)
  Sender: FDA-Public Use
  Company Number: US-VERTEX PHARMACEUTICALS INC.-AE-2011-002158

PATIENT
  Sex: Female
  Weight: 59.02 kg

DRUGS (6)
  1. PEGASYS [Concomitant]
     Indication: HEPATITIS C
     Route: 058
     Dates: start: 20110708, end: 20110909
  2. RIBAVIRIN [Concomitant]
     Indication: HEPATITIS C
     Route: 048
     Dates: start: 20110708, end: 20110909
  3. PROPRANOLOL [Concomitant]
     Route: 048
  4. INCIVEK [Suspect]
     Indication: HEPATITIS C
     Route: 048
     Dates: start: 20110708, end: 20110909
  5. LEXAPRO [Concomitant]
     Route: 048
  6. SYNTHROID [Concomitant]
     Route: 048

REACTIONS (4)
  - MALAISE [None]
  - PLATELET COUNT DECREASED [None]
  - RED BLOOD CELL COUNT DECREASED [None]
  - FATIGUE [None]
